FAERS Safety Report 20378593 (Version 1)
Quarter: 2022Q1

REPORT INFORMATION
  Report Type: Spontaneous
  Country: US (occurrence: None)
  Receive Date: 20220125
  Receipt Date: 20220125
  Transmission Date: 20220424
  Serious: No
  Sender: FDA-Public Use
  Company Number: None

PATIENT
  Age: 42 Year
  Sex: Female
  Weight: 85.5 kg

DRUGS (1)
  1. OZEMPIC [Suspect]
     Active Substance: SEMAGLUTIDE
     Indication: Weight control
     Dosage: FREQUENCY : WEEKLY;?
     Route: 058
     Dates: start: 20220104

REACTIONS (1)
  - Alopecia [None]

NARRATIVE: CASE EVENT DATE: 20220125
